FAERS Safety Report 23500136 (Version 3)
Quarter: 2025Q2

REPORT INFORMATION
  Report Type: Spontaneous
  Country: FR (occurrence: FR)
  Receive Date: 20240208
  Receipt Date: 20250616
  Transmission Date: 20250717
  Serious: Yes (Hospitalization, Other)
  Sender: HIKMA
  Company Number: FR-AFSSAPS-RN2024000011

PATIENT
  Age: 73 Year
  Sex: Female
  Weight: 60 kg

DRUGS (6)
  1. CARBOPLATIN [Suspect]
     Active Substance: CARBOPLATIN
     Indication: Endometrial cancer
     Route: 042
     Dates: start: 20231222, end: 20231222
  2. JEMPERLI [Suspect]
     Active Substance: DOSTARLIMAB-GXLY
     Indication: Endometrial cancer
     Dosage: 500 MG, Q3W, 500 MG, 3W (FOR THE FIRST 6 CYCLES)
     Route: 058
     Dates: start: 20231222, end: 20231222
  3. JEMPERLI [Suspect]
     Active Substance: DOSTARLIMAB-GXLY
     Indication: Neoplasm
  4. PACLITAXEL [Suspect]
     Active Substance: PACLITAXEL
     Indication: Endometrial cancer
     Route: 042
     Dates: start: 20231222, end: 20231222
  5. PRISTINAMYCIN [Suspect]
     Active Substance: PRISTINAMYCIN
     Indication: Bronchitis
     Dosage: 6 DOSAGE FORM, QD (2-2-2 FOR 4 DAYS)
     Route: 048
     Dates: start: 20231226, end: 20231230
  6. ZIEXTENZO [Suspect]
     Active Substance: PEGFILGRASTIM-BMEZ
     Indication: Blood disorder prophylaxis
     Route: 058
     Dates: start: 20231224, end: 20231224

REACTIONS (1)
  - Drug reaction with eosinophilia and systemic symptoms [Recovering/Resolving]

NARRATIVE: CASE EVENT DATE: 20231230
